FAERS Safety Report 4868825-6 (Version None)
Quarter: 2005Q4

REPORT INFORMATION
  Report Type: 
  Country: None (occurrence: None)
  Receive Date: 20051223
  Receipt Date: 20051214
  Transmission Date: 20060501
  Serious: Yes (Disabling, Other)
  Sender: FDA-Public Use
  Company Number: 2005162295

PATIENT
  Age: 38 Year
  Sex: Male

DRUGS (4)
  1. ZOLOFT [Suspect]
     Indication: DEPRESSION
     Dosage: 300 MG (50 MG, 2 IN 1 D), ORAL
     Route: 048
     Dates: start: 19990101
  2. LITAREX (LITHIUM CITRATE) [Concomitant]
  3. RITALIN [Concomitant]
  4. ALL OTHER THERAPEUTIC PRODUCTS [Concomitant]

REACTIONS (6)
  - ALANINE AMINOTRANSFERASE INCREASED [None]
  - ALCOHOL INTOLERANCE [None]
  - BLOOD BILIRUBIN INCREASED [None]
  - BLOOD THYROID STIMULATING HORMONE INCREASED [None]
  - HAEMATOCRIT DECREASED [None]
  - RED CELL DISTRIBUTION WIDTH INCREASED [None]
